FAERS Safety Report 7609831-8 (Version None)
Quarter: 2011Q3

REPORT INFORMATION
  Report Type: 
  Country: None (occurrence: None)
  Receive Date: 20110714
  Receipt Date: 20110705
  Transmission Date: 20111222
  Serious: Yes (Hospitalization)
  Sender: FDA-Public Use
  Company Number: US-ASTRAZENECA-2011SE33529

PATIENT
  Age: 77 Year
  Sex: Male
  Weight: 81 kg

DRUGS (12)
  1. SYNTHROID [Concomitant]
  2. LANSOPRAZOLE [Concomitant]
     Dosage: 15 MG DAILY, PRN
     Route: 050
  3. LASIX [Concomitant]
  4. ASPIRIN [Concomitant]
     Route: 050
  5. CALCIUM CARBONATE [Concomitant]
  6. RAPAFLO [Concomitant]
     Route: 050
  7. CALCITRIOL [Concomitant]
  8. LEXAPRO [Concomitant]
  9. HYDROCODONE [Concomitant]
  10. DUONEB [Concomitant]
     Dosage: 0.5-2.5 (3) MG PRN
     Route: 055
  11. PROCHLORPERAZINE MALEATE [Concomitant]
     Route: 050
  12. VANDETANIB [Suspect]
     Indication: THYROID CANCER
     Route: 048
     Dates: start: 20110520

REACTIONS (9)
  - HOT FLUSH [None]
  - COUGH [None]
  - DYSPNOEA [None]
  - DIARRHOEA [None]
  - BLOOD CALCITONIN DECREASED [None]
  - NAUSEA [None]
  - BLOOD SODIUM DECREASED [None]
  - VOMITING [None]
  - BLOOD PRESSURE INCREASED [None]
